FAERS Safety Report 9579467 (Version 2)
Quarter: 2013Q4

REPORT INFORMATION
  Report Type: Spontaneous
  Country: US (occurrence: US)
  Receive Date: 20131001
  Receipt Date: 20131001
  Transmission Date: 20140711
  Serious: No
  Sender: FDA-Public Use
  Company Number: US-AMGEN-USASP2013007817

PATIENT
  Age: 67 Year
  Sex: Female

DRUGS (12)
  1. ENBREL [Suspect]
     Indication: RHEUMATOID ARTHRITIS
     Dosage: 50 MG, QWK
     Route: 058
  2. NORVASC [Concomitant]
     Dosage: 2.5 MG, UNK
  3. ATENOLOL [Concomitant]
     Dosage: 25 MG, UNK
  4. HYDROCHLOROTH [Concomitant]
     Dosage: 12.5 MG, UNK
  5. CITRACAL PLUS [Concomitant]
     Dosage: UNK
  6. ATORVASTATIN [Concomitant]
     Dosage: 20 MG, UNK
  7. FISH OIL [Concomitant]
     Dosage: UNK
  8. OSTEO BI-FLEX [Concomitant]
     Dosage: UNK
  9. LOXIN                              /00328002/ [Concomitant]
     Dosage: UNK
  10. MULTIVITAMINS, PLAIN [Concomitant]
     Dosage: UNK
  11. COQ10                              /00517201/ [Concomitant]
     Dosage: 100 MG, UNK
  12. RESVERATROL [Concomitant]
     Dosage: 50 MG, UNK

REACTIONS (2)
  - Sinusitis [Unknown]
  - Nasopharyngitis [Unknown]
